FAERS Safety Report 9933718 (Version 2)
Quarter: 2014Q1

REPORT INFORMATION
  Report Type: Report from Study
  Country: US (occurrence: US)
  Receive Date: 20140228
  Receipt Date: 20140228
  Transmission Date: 20141002
  Serious: No
  Sender: FDA-Public Use
  Company Number: US-MYLANLABS-2013S1011631

PATIENT
  Age: 30 Year
  Sex: Male
  Weight: 110.22 kg

DRUGS (3)
  1. AMNESTEEM CAPSULES [Suspect]
     Indication: ACNE
     Route: 048
     Dates: start: 201301, end: 2013
  2. AMNESTEEM CAPSULES [Suspect]
     Indication: ACNE
     Route: 048
     Dates: start: 2013, end: 20130501
  3. TESTOSTERONE [Concomitant]

REACTIONS (3)
  - Dry skin [Recovered/Resolved]
  - Lip dry [Recovered/Resolved]
  - Asthenia [Recovered/Resolved]
